FAERS Safety Report 9579025 (Version 1)
Quarter: 2013Q4

REPORT INFORMATION
  Report Type: Spontaneous
  Country: US (occurrence: US)
  Receive Date: 20131001
  Receipt Date: 20131001
  Transmission Date: 20140711
  Serious: No
  Sender: FDA-Public Use
  Company Number: US-AMGEN-USASP2013016161

PATIENT
  Age: 55 Year
  Sex: Female

DRUGS (9)
  1. ENBREL [Suspect]
     Indication: PSORIATIC ARTHROPATHY
     Dosage: 50 MG, QWK
     Route: 058
  2. SINGULAIR [Concomitant]
     Dosage: 10 MG, UNK
  3. VOLTAREN                           /00372301/ [Concomitant]
     Dosage: 25 MG, EO, UNK
  4. METHOTREXATE [Concomitant]
     Dosage: 2.5 MG, UNK
  5. FOLIC ACID [Concomitant]
     Dosage: 1 MG, UNK
  6. ALBUTEROL                          /00139501/ [Concomitant]
     Dosage: 0.083%, NEB
  7. ADVAIR [Concomitant]
     Dosage: 100/50, DISCU AER
  8. PROZAC [Concomitant]
     Dosage: 10 MG, UNK
  9. SPIRIVA HANDIHALER [Concomitant]
     Dosage: UNK

REACTIONS (1)
  - Pneumonia [Unknown]
